FAERS Safety Report 24290294 (Version 1)
Quarter: 2024Q3

REPORT INFORMATION
  Report Type: Spontaneous
  Country: US (occurrence: None)
  Receive Date: 20240905
  Receipt Date: 20240905
  Transmission Date: 20241017
  Serious: No
  Sender: Public
  Company Number: None

PATIENT
  Age: 6 Year
  Sex: Female

DRUGS (8)
  1. AMBRISENTAN [Suspect]
     Active Substance: AMBRISENTAN
     Indication: Pulmonary arterial hypertension
  2. ASPIRIN [Concomitant]
     Active Substance: ASPIRIN
  3. SILDENAFIL CITRATE [Concomitant]
     Active Substance: SILDENAFIL CITRATE
  4. LIDOCAINE HYDROCHLORIDE [Concomitant]
     Active Substance: LIDOCAINE HYDROCHLORIDE
  5. ONDANSETRON HYDROCHLORIDE [Concomitant]
     Active Substance: ONDANSETRON HYDROCHLORIDE
  6. REMODULIN [Concomitant]
     Active Substance: TREPROSTINIL
  7. TRIAMCINOLONE ACETONIDE [Concomitant]
     Active Substance: TRIAMCINOLONE ACETONIDE
  8. FUROSEMIDE [Concomitant]
     Active Substance: FUROSEMIDE

REACTIONS (1)
  - Extra dose administered [None]

NARRATIVE: CASE EVENT DATE: 20240904
